FAERS Safety Report 21867697 (Version 4)
Quarter: 2023Q2

REPORT INFORMATION
  Report Type: Spontaneous
  Country: PR (occurrence: PR)
  Receive Date: 20230116
  Receipt Date: 20230412
  Transmission Date: 20230722
  Serious: No
  Sender: FDA-Public Use
  Company Number: PR-JNJFOC-20230116473

PATIENT
  Age: 94 Year
  Sex: Male

DRUGS (2)
  1. ERLEADA [Suspect]
     Active Substance: APALUTAMIDE
     Indication: Prostate cancer
     Route: 048
  2. ERLEADA [Suspect]
     Active Substance: APALUTAMIDE
     Route: 048

REACTIONS (11)
  - Dizziness [Recovering/Resolving]
  - Hypertension [Recovered/Resolved]
  - Pain in extremity [Recovered/Resolved]
  - Procedural pain [Recovered/Resolved]
  - Back pain [Recovered/Resolved]
  - Onychomycosis [Recovered/Resolved]
  - Onychomadesis [Unknown]
  - Prostatic specific antigen increased [Unknown]
  - Off label use [Unknown]
  - Decreased appetite [Unknown]
  - Thyroid function test abnormal [Unknown]
